FAERS Safety Report 7485466-5 (Version None)
Quarter: 2011Q2

REPORT INFORMATION
  Report Type: 
  Country: None (occurrence: None)
  Receive Date: 20110516
  Receipt Date: 20110516
  Transmission Date: 20111010
  Serious: Yes (Life-Threatening, Other)
  Sender: FDA-Public Use
  Company Number: None

PATIENT
  Sex: Male
  Weight: 110.2241 kg

DRUGS (2)
  1. SPIRIVA CO-HANDIHALER [Concomitant]
  2. SPIRIVA [Suspect]
     Indication: CHRONIC OBSTRUCTIVE PULMONARY DISEASE
     Dosage: 18MCG ONCE DAILY INHALER
     Route: 055
     Dates: start: 20050201, end: 20110508

REACTIONS (3)
  - DISORIENTATION [None]
  - DYSPNOEA [None]
  - LOSS OF CONSCIOUSNESS [None]
